FAERS Safety Report 14691532 (Version 2)
Quarter: 2018Q4

REPORT INFORMATION
  Report Type: Spontaneous
  Country: CH (occurrence: CH)
  Receive Date: 20180328
  Receipt Date: 20181221
  Transmission Date: 20190204
  Serious: Yes (Death, Hospitalization)
  Sender: FDA-Public Use
  Company Number: CH-ASTRAZENECA-2018SE35566

PATIENT
  Age: 92 Year
  Sex: Female

DRUGS (17)
  1. ZYLORIC [Suspect]
     Active Substance: ALLOPURINOL
     Route: 048
     Dates: end: 20180208
  2. NOVONORM [Concomitant]
     Active Substance: REPAGLINIDE
  3. ATORVASTATIN [Concomitant]
     Active Substance: ATORVASTATIN
  4. NEXIUM MUPS [Suspect]
     Active Substance: ESOMEPRAZOLE MAGNESIUM
     Route: 048
     Dates: end: 20180321
  5. CATAPRESAN [Suspect]
     Active Substance: CLONIDINE
     Route: 048
     Dates: start: 201705, end: 20180212
  6. ANXIOLIT [Suspect]
     Active Substance: OXAZEPAM
     Route: 048
  7. ZANIDIP [Concomitant]
     Active Substance: LERCANIDIPINE HYDROCHLORIDE
     Dates: end: 2017
  8. RESONIUM [Concomitant]
     Active Substance: SODIUM POLYSTYRENE SULFONATE
     Route: 048
     Dates: end: 20180201
  9. VITARUBIN [Concomitant]
     Active Substance: CYANOCOBALAMIN
     Dates: start: 201801
  10. SINTROM [Concomitant]
     Active Substance: ACENOCOUMAROL
     Dates: start: 201802
  11. ESCITALOPRAM [Concomitant]
     Active Substance: ESCITALOPRAM OXALATE
     Dates: start: 20180226
  12. ATACAND PLUS [Concomitant]
     Active Substance: CANDESARTAN CILEXETIL\HYDROCHLOROTHIAZIDE
     Dates: end: 2017
  13. TORASEMIDE [Concomitant]
     Active Substance: TORSEMIDE
  14. ESCITALOPRAM [Concomitant]
     Active Substance: ESCITALOPRAM OXALATE
     Dates: start: 20180212, end: 20180226
  15. CATAPRESAN [Suspect]
     Active Substance: CLONIDINE
     Dosage: 150 MG, HALF UNIT PER DAY
     Route: 048
     Dates: start: 201802, end: 20180212
  16. NEPHROTRANS [Concomitant]
     Active Substance: SODIUM BICARBONATE
  17. AMLODIPINE [Concomitant]
     Active Substance: AMLODIPINE BESYLATE
     Dates: start: 20180218

REACTIONS (1)
  - Psychiatric symptom [Recovered/Resolved]

NARRATIVE: CASE EVENT DATE: 2017
